FAERS Safety Report 4971076-8 (Version None)
Quarter: 2006Q1

REPORT INFORMATION
  Report Type: 
  Country: None (occurrence: None)
  Receive Date: 20060207
  Receipt Date: 20050110
  Transmission Date: 20060701
  Serious: Yes (Hospitalization, Other)
  Sender: FDA-Public Use
  Company Number: USA041182950

PATIENT
  Age: 71 Year
  Sex: Female

DRUGS (16)
  1. EVISTA [Suspect]
     Indication: OSTEOPOROSIS
     Dosage: 60 MG DAY
     Dates: start: 19980101, end: 20040101
  2. FORTEO [Suspect]
     Indication: OSTEOPOROSIS
     Dosage: 20 UG DAY
     Dates: start: 20041025, end: 20041101
  3. FOSAMAX [Concomitant]
  4. ACTONEL [Concomitant]
  5. PULMICORT [Concomitant]
  6. COUMADIN [Concomitant]
  7. AVALIDE [Concomitant]
  8. SYNTHROID [Concomitant]
  9. K-DUR 10 [Concomitant]
  10. CALCIUM CARBONATE W/VITAMIN D NOS [Concomitant]
  11. MULTIVITAMINS NOS (MULTIVITAMINS NOS) [Concomitant]
  12. PRILOSEC (OMEPRAZOLE RATIOPHARM) [Concomitant]
  13. CELEXA [Concomitant]
  14. NORVASC [Concomitant]
  15. ATROVENT [Concomitant]
  16. ZON (KETOPROFEN) [Concomitant]

REACTIONS (7)
  - DIZZINESS [None]
  - GASTROINTESTINAL DISORDER [None]
  - MUSCULAR WEAKNESS [None]
  - MYALGIA [None]
  - PNEUMONIA [None]
  - STOMACH DISCOMFORT [None]
  - VENOUS THROMBOSIS [None]
